FAERS Safety Report 7465728-8 (Version None)
Quarter: 2011Q2

REPORT INFORMATION
  Report Type: 
  Country: None (occurrence: None)
  Receive Date: 20110509
  Receipt Date: 20110426
  Transmission Date: 20111010
  Serious: Yes (Hospitalization)
  Sender: FDA-Public Use
  Company Number: R0003453A

PATIENT
  Age: 79 Year
  Sex: Female

DRUGS (2)
  1. ALBUTEROL [Suspect]
     Indication: CHRONIC OBSTRUCTIVE PULMONARY DISEASE
     Route: 055
     Dates: start: 20060127, end: 20081121
  2. FLUARIX [Suspect]
     Route: 030
     Dates: start: 20081013, end: 20081013

REACTIONS (2)
  - RESPIRATORY FAILURE [None]
  - ATRIAL FIBRILLATION [None]
